FAERS Safety Report 21968058 (Version 2)
Quarter: 2023Q1

REPORT INFORMATION
  Report Type: Spontaneous
  Country: US (occurrence: US)
  Receive Date: 20230208
  Receipt Date: 20230214
  Transmission Date: 20230418
  Serious: No
  Sender: FDA-Public Use
  Company Number: US-009507513-2302USA000632

PATIENT
  Age: 86 Year
  Sex: Male

DRUGS (2)
  1. KEYTRUDA [Suspect]
     Active Substance: PEMBROLIZUMAB
     Indication: Neuroendocrine carcinoma of the skin
     Dosage: UNK UNK, EVERY 6 WEEKS
     Dates: start: 20170804
  2. KEYTRUDA [Suspect]
     Active Substance: PEMBROLIZUMAB
     Dosage: 1 MILLIGRAM, EVERY 6 WEEKS

REACTIONS (10)
  - Weight decreased [Unknown]
  - Stress [Unknown]
  - Transient acantholytic dermatosis [Unknown]
  - Cardiomegaly [Unknown]
  - Renal cyst [Unknown]
  - Rash [Recovered/Resolved]
  - Pruritus [Unknown]
  - Lip disorder [Recovered/Resolved]
  - Limb injury [Recovered/Resolved]
  - Product use issue [Unknown]

NARRATIVE: CASE EVENT DATE: 20220627
